FAERS Safety Report 16145805 (Version 1)
Quarter: 2019Q2

REPORT INFORMATION
  Report Type: Spontaneous
  Country: US (occurrence: US)
  Receive Date: 20190227
  Receipt Date: 20190227
  Transmission Date: 20190711
  Serious: Yes (Hospitalization)
  Sender: FDA-Public Use
  Company Number: None

PATIENT
  Sex: Female

DRUGS (29)
  1. BUDESONIDE. [Concomitant]
     Active Substance: BUDESONIDE
  2. ALBUTEROL. [Concomitant]
     Active Substance: ALBUTEROL
  3. SPIRONOLACTONE. [Concomitant]
     Active Substance: SPIRONOLACTONE
  4. CITALOPRAM [Concomitant]
     Active Substance: CITALOPRAM HYDROBROMIDE
  5. NAPROXEN. [Concomitant]
     Active Substance: NAPROXEN
  6. DILTIAZEM. [Concomitant]
     Active Substance: DILTIAZEM
  7. NUVARING [Concomitant]
     Active Substance: ETHINYL ESTRADIOL\ETONOGESTREL
  8. ONDANSETRON [Concomitant]
     Active Substance: ONDANSETRON
  9. SODIUM CHLORIDE. [Concomitant]
     Active Substance: SODIUM CHLORIDE
  10. OMEPRAZOLE. [Concomitant]
     Active Substance: OMEPRAZOLE
  11. RANITIDINE. [Concomitant]
     Active Substance: RANITIDINE
  12. CLONAZEPAM. [Concomitant]
     Active Substance: CLONAZEPAM
  13. OXYCODONE [Concomitant]
     Active Substance: OXYCODONE
  14. AYR [Concomitant]
  15. MORPHINE SULF [Concomitant]
     Active Substance: MORPHINE SULFATE
  16. LORAZEPAM. [Concomitant]
     Active Substance: LORAZEPAM
  17. PULMOZYME [Concomitant]
     Active Substance: DORNASE ALFA
  18. BUPROPN HCL [Concomitant]
     Active Substance: BUPROPION HYDROCHLORIDE
  19. DOK [Concomitant]
     Active Substance: DOCUSATE SODIUM
  20. DULOXETINE. [Concomitant]
     Active Substance: DULOXETINE
  21. FLUTICASONE. [Concomitant]
     Active Substance: FLUTICASONE
  22. AZITHROMYCIN ANHYDROUS. [Concomitant]
     Active Substance: AZITHROMYCIN ANHYDROUS
  23. HYDROXYZ PAM [Concomitant]
     Active Substance: HYDROXYZINE PAMOATE
  24. MELOXICAM. [Concomitant]
     Active Substance: MELOXICAM
  25. TOBRAMYCIN  300MG/5ML [Suspect]
     Active Substance: TOBRAMYCIN
     Indication: CYSTIC FIBROSIS
     Route: 055
     Dates: start: 20190112
  26. GABAPENTIN. [Concomitant]
     Active Substance: GABAPENTIN
  27. NUVARING [Concomitant]
     Active Substance: ETHINYL ESTRADIOL\ETONOGESTREL
  28. CETIRIZINE [Concomitant]
     Active Substance: CETIRIZINE HYDROCHLORIDE
  29. AMITRIPTYLIN [Concomitant]
     Active Substance: AMITRIPTYLINE

REACTIONS (2)
  - Hospitalisation [None]
  - Cystic fibrosis [None]
